FAERS Safety Report 10056318 (Version 1)
Quarter: 2014Q2

REPORT INFORMATION
  Report Type: Spontaneous
  Country: US (occurrence: US)
  Receive Date: 20140403
  Receipt Date: 20140403
  Transmission Date: 20141212
  Serious: Yes (Other)
  Sender: FDA-Public Use
  Company Number: US-ASTRAZENECA-2014SE21681

PATIENT
  Age: 92 Year
  Sex: Female
  Weight: 59 kg

DRUGS (9)
  1. ATACAND [Suspect]
     Indication: HYPERTENSION
     Route: 048
     Dates: end: 20120701
  2. ATACAND [Suspect]
     Indication: HYPERTENSION
     Route: 048
     Dates: start: 201208, end: 201403
  3. ATACAND [Suspect]
     Indication: HYPERTENSION
     Dosage: GENERIC
     Route: 048
     Dates: start: 20140310, end: 20140324
  4. ATACAND [Suspect]
     Indication: HYPERTENSION
     Route: 048
     Dates: start: 20140325
  5. CILOSTAZOL [Concomitant]
     Indication: VEIN DISORDER
     Route: 048
  6. CILOSTAZOL [Concomitant]
     Indication: CARDIOVASCULAR DISORDER
     Route: 048
  7. ASPIRIN [Concomitant]
     Indication: DRUG THERAPY
     Route: 048
  8. VITAMIN C [Concomitant]
  9. FISH OIL [Concomitant]

REACTIONS (8)
  - Hypertension [Recovered/Resolved]
  - Drug dose omission [Unknown]
  - Body height decreased [Unknown]
  - Head discomfort [Recovered/Resolved]
  - Headache [Recovered/Resolved]
  - Feeling abnormal [Recovered/Resolved]
  - Ocular discomfort [Recovered/Resolved]
  - Drug ineffective [Unknown]
